FAERS Safety Report 7793555-0 (Version None)
Quarter: 2011Q4

REPORT INFORMATION
  Report Type: 
  Country: None (occurrence: None)
  Receive Date: 20111003
  Receipt Date: 20110928
  Transmission Date: 20120403
  Serious: Yes (Other)
  Sender: FDA-Public Use
  Company Number: US-SANOFI-AVENTIS-2011SA064176

PATIENT
  Sex: Female

DRUGS (3)
  1. LANTUS [Suspect]
     Route: 058
     Dates: end: 20040101
  2. LANTUS [Suspect]
     Dosage: 50 UNITS IN MORNING, 75 UNITS IN EVENING
     Route: 058
     Dates: start: 20040101
  3. SOLOSTAR [Suspect]
     Dates: start: 20040101

REACTIONS (1)
  - SQUAMOUS CELL CARCINOMA [None]
